FAERS Safety Report 6502761-4 (Version None)
Quarter: 2009Q4

REPORT INFORMATION
  Report Type: 
  Country: None (occurrence: None)
  Receive Date: 20091127
  Receipt Date: 20090320
  Transmission Date: 20100525
  Serious: Yes (Disabling, Other)
  Sender: FDA-Public Use
  Company Number: WAES 0903USA04198

PATIENT
  Age: 56 Year
  Sex: Female
  Weight: 55.3388 kg

DRUGS (7)
  1. FOSAMAX [Suspect]
     Indication: OSTEOPENIA
     Dosage: 70 MG/PO;70 MG/WKY/PO;10 MG/DAILY/PO
     Route: 048
     Dates: end: 20001205
  2. FOSAMAX [Suspect]
     Indication: OSTEOPOROSIS
     Dosage: 70 MG/PO;70 MG/WKY/PO;10 MG/DAILY/PO
     Route: 048
     Dates: end: 20001205
  3. FOSAMAX [Suspect]
     Indication: OSTEOPENIA
     Dosage: 70 MG/PO;70 MG/WKY/PO;10 MG/DAILY/PO
     Route: 048
     Dates: start: 19970101, end: 20051201
  4. FOSAMAX [Suspect]
     Indication: OSTEOPOROSIS
     Dosage: 70 MG/PO;70 MG/WKY/PO;10 MG/DAILY/PO
     Route: 048
     Dates: start: 19970101, end: 20051201
  5. FOSAMAX [Suspect]
     Indication: OSTEOPENIA
     Dosage: 70 MG/PO;70 MG/WKY/PO;10 MG/DAILY/PO
     Route: 048
     Dates: start: 20001205
  6. FOSAMAX [Suspect]
     Indication: OSTEOPOROSIS
     Dosage: 70 MG/PO;70 MG/WKY/PO;10 MG/DAILY/PO
     Route: 048
     Dates: start: 20001205
  7. AMITRIPTYLINE HYDROCHLORIDE [Concomitant]

REACTIONS (16)
  - CONTUSION [None]
  - DEPRESSION [None]
  - DIVERTICULUM [None]
  - EUSTACHIAN TUBE DYSFUNCTION [None]
  - FLUSHING [None]
  - GINGIVAL DISORDER [None]
  - HYPERTENSION [None]
  - JAW DISORDER [None]
  - ORAL INFECTION [None]
  - OSTEONECROSIS [None]
  - OSTEOPENIA [None]
  - OSTEOPOROSIS [None]
  - PNEUMONIA [None]
  - ROAD TRAFFIC ACCIDENT [None]
  - SKIN LESION [None]
  - ULCER [None]
